FAERS Safety Report 4839696-9 (Version None)
Quarter: 2005Q4

REPORT INFORMATION
  Report Type: 
  Country: None (occurrence: None)
  Receive Date: 20051129
  Receipt Date: 20050609
  Transmission Date: 20060501
  Serious: No
  Sender: FDA-Public Use
  Company Number: US-GLAXOSMITHKLINE-A0562297A

PATIENT
  Age: 54 Year
  Sex: Male

DRUGS (9)
  1. BUPROPION HCL [Suspect]
     Indication: DEPRESSION
     Dosage: 100MG PER DAY
     Route: 048
     Dates: start: 20050508
  2. METFORMIN [Concomitant]
  3. AMARYL [Concomitant]
  4. ASPIRIN [Concomitant]
  5. ALLOPURINOL [Concomitant]
  6. LIPITOR [Concomitant]
  7. DIOVAN [Concomitant]
  8. FISH OIL [Concomitant]
  9. VITAMINS [Concomitant]

REACTIONS (2)
  - DIARRHOEA [None]
  - MEDICATION RESIDUE [None]
